FAERS Safety Report 9017526 (Version 1)
Quarter: 2013Q1

REPORT INFORMATION
  Report Type: Spontaneous
  Country: BR (occurrence: BR)
  Receive Date: 20130117
  Receipt Date: 20130117
  Transmission Date: 20140127
  Serious: Yes (Hospitalization, Other)
  Sender: FDA-Public Use
  Company Number: BR-PFIZER INC-2013006353

PATIENT
  Sex: Female
  Weight: 55 kg

DRUGS (2)
  1. DEPO-PROVERA [Suspect]
     Dosage: UNK
     Dates: start: 201210
  2. LASIX [Suspect]
     Indication: SWELLING
     Dosage: UNK
     Dates: start: 20121226

REACTIONS (12)
  - Blood pressure decreased [Unknown]
  - Micturition disorder [Unknown]
  - Swelling [Not Recovered/Not Resolved]
  - Weight increased [Not Recovered/Not Resolved]
  - Local swelling [Unknown]
  - Pain in extremity [Not Recovered/Not Resolved]
  - Amenorrhoea [Unknown]
  - Feeling abnormal [Unknown]
  - Blood blister [Unknown]
  - Breast tenderness [Unknown]
  - Arthralgia [Not Recovered/Not Resolved]
  - Drug ineffective [Unknown]
